FAERS Safety Report 21261247 (Version 2)
Quarter: 2022Q3

REPORT INFORMATION
  Report Type: Report from Study
  Country: CH (occurrence: CH)
  Receive Date: 20220826
  Receipt Date: 20220901
  Transmission Date: 20221026
  Serious: Yes (Death, Life-Threatening)
  Sender: FDA-Public Use
  Company Number: CH-ABBVIE-22K-151-4481086-00

PATIENT
  Age: 82 Year
  Sex: Female

DRUGS (2)
  1. CARBIDOPA\LEVODOPA [Suspect]
     Active Substance: CARBIDOPA\LEVODOPA
     Indication: Parkinson^s disease
     Route: 050
     Dates: start: 20210210
  2. CARBIDOPA\LEVODOPA [Suspect]
     Active Substance: CARBIDOPA\LEVODOPA
     Dosage: MD: 1 ML, CRD: 3.7 ML/H, CRN: 2.5 ML/H, ED: 1 ML 24H THERAPY
     Route: 050
     Dates: start: 20220412

REACTIONS (5)
  - General physical health deterioration [Fatal]
  - Device placement issue [Unknown]
  - Urinary tract infection [Recovered/Resolved]
  - Freezing phenomenon [Unknown]
  - Drug ineffective [Unknown]

NARRATIVE: CASE EVENT DATE: 20220701
